FAERS Safety Report 18337118 (Version 2)
Quarter: 2020Q4

REPORT INFORMATION
  Report Type: Spontaneous
  Country: CN (occurrence: CN)
  Receive Date: 20201001
  Receipt Date: 20201112
  Transmission Date: 20210113
  Serious: Yes (Hospitalization, Other)
  Sender: FDA-Public Use
  Company Number: CN-AMGEN-CHNSP2020158832

PATIENT
  Age: 60 Year
  Sex: Female

DRUGS (1)
  1. ENBREL [Suspect]
     Active Substance: ETANERCEPT
     Indication: SPONDYLITIS
     Dosage: 1 DF, WEEKLY (ONE INJECTION ONCE A WEEK)
     Route: 058
     Dates: start: 202009

REACTIONS (4)
  - Product use in unapproved indication [Recovered/Resolved]
  - Off label use [Recovered/Resolved]
  - Platelet count decreased [Recovered/Resolved]
  - Megakaryocytes abnormal [Recovered/Resolved]

NARRATIVE: CASE EVENT DATE: 202009
